FAERS Safety Report 9168726 (Version 3)
Quarter: 2013Q2

REPORT INFORMATION
  Report Type: Spontaneous
  Country: RU (occurrence: RU)
  Receive Date: 20130318
  Receipt Date: 20130410
  Transmission Date: 20140414
  Serious: Yes (Death)
  Sender: FDA-Public Use
  Company Number: RU-ASTRAZENECA-2013SE17218

PATIENT
  Age: 86 Year
  Sex: Male
  Weight: 52 kg

DRUGS (4)
  1. MARCAINE [Suspect]
     Indication: SPINAL ANAESTHESIA
     Route: 008
     Dates: start: 20130207
  2. MARCAINE [Suspect]
     Indication: SPINAL ANAESTHESIA
     Route: 037
  3. PHENAZEPAM [Concomitant]
     Indication: EMOTIONAL DISTRESS
     Route: 048
     Dates: start: 20130206, end: 20130206
  4. PHENAZEPAM [Concomitant]
     Indication: EMOTIONAL DISTRESS
     Route: 042
     Dates: start: 20130207, end: 20130207

REACTIONS (3)
  - Cardiac arrest [Fatal]
  - Respiratory arrest [Fatal]
  - Incorrect route of drug administration [Unknown]
